FAERS Safety Report 5427090-1 (Version None)
Quarter: 2007Q3

REPORT INFORMATION
  Report Type: 
  Country: None (occurrence: None)
  Receive Date: 20070824
  Receipt Date: 20070824
  Transmission Date: 20080115
  Serious: Yes (Hospitalization)
  Sender: FDA-Public Use
  Company Number: None

PATIENT
  Age: 84 Year
  Sex: Male

DRUGS (9)
  1. METRONIDAZOLE [Suspect]
     Indication: CLOSTRIDIAL INFECTION
     Dosage: 500MG PO TID
     Route: 048
     Dates: start: 20070413, end: 20070422
  2. ACTOS [Concomitant]
  3. DECADRON [Concomitant]
  4. DILTIAZEM [Concomitant]
  5. LASIX [Concomitant]
  6. GLUCOTROL [Concomitant]
  7. METOPROLOL SUCCINATE [Concomitant]
  8. NORVASC [Concomitant]
  9. INSULIN [Concomitant]

REACTIONS (2)
  - NAUSEA [None]
  - VOMITING [None]
